FAERS Safety Report 21899280 (Version 1)
Quarter: 2023Q1

REPORT INFORMATION
  Report Type: Spontaneous
  Country: GB (occurrence: GB)
  Receive Date: 20230123
  Receipt Date: 20230123
  Transmission Date: 20230417
  Serious: Yes (Hospitalization, Other)
  Sender: FDA-Public Use
  Company Number: GB-MHRA-MED-202301181934550140-JZHKY

PATIENT
  Age: 78 Year
  Sex: Male
  Weight: 63 kg

DRUGS (1)
  1. LEFLUNOMIDE [Suspect]
     Active Substance: LEFLUNOMIDE
     Indication: Giant cell arteritis
     Dosage: UNK
     Dates: start: 20220318, end: 20220704

REACTIONS (3)
  - Dermatitis [Recovered/Resolved]
  - Hepatitis [Recovering/Resolving]
  - Colitis [Not Recovered/Not Resolved]
